FAERS Safety Report 6132266-4 (Version None)
Quarter: 2009Q1

REPORT INFORMATION
  Report Type: 
  Country: None (occurrence: None)
  Receive Date: 20090325
  Receipt Date: 20090313
  Transmission Date: 20090719
  Serious: No
  Sender: FDA-Public Use
  Company Number: ZA-AVENTIS-200912723GDDC

PATIENT
  Sex: Male

DRUGS (1)
  1. ARAVA [Suspect]
     Dosage: DOSE: UNK
     Route: 048

REACTIONS (3)
  - DRUG EXPOSURE DURING PREGNANCY [None]
  - PATERNAL DRUGS AFFECTING FOETUS [None]
  - PREGNANCY OF PARTNER [None]
